FAERS Safety Report 24537408 (Version 2)
Quarter: 2024Q4

REPORT INFORMATION
  Report Type: Spontaneous
  Country: RO (occurrence: RO)
  Receive Date: 20241022
  Receipt Date: 20241024
  Transmission Date: 20250115
  Serious: Yes (Other)
  Sender: MERCK
  Company Number: RO-009507513-2410ROU006352

PATIENT
  Age: 43 Year
  Sex: Female

DRUGS (13)
  1. KEYTRUDA [Suspect]
     Active Substance: PEMBROLIZUMAB
     Indication: Breast neoplasm
     Dosage: 200 MILLIGRAM
     Dates: start: 20240807, end: 20240807
  2. KEYTRUDA [Suspect]
     Active Substance: PEMBROLIZUMAB
     Dosage: 200 MILLIGRAM
     Dates: start: 20240902, end: 20240902
  3. KEYTRUDA [Suspect]
     Active Substance: PEMBROLIZUMAB
     Dosage: 200 MILLIGRAM
     Dates: start: 20241007, end: 20241007
  4. CARBOPLATIN [Suspect]
     Active Substance: CARBOPLATIN
     Indication: Breast neoplasm
     Dosage: AREA UNDER THE CURVE (AUC) 5 DAY 1
     Dates: start: 20240807, end: 20240807
  5. CARBOPLATIN [Suspect]
     Active Substance: CARBOPLATIN
     Dosage: AREA UNDER THE CURVE (AUC) 5 DAY 1
     Dates: start: 20240902, end: 20240902
  6. CARBOPLATIN [Suspect]
     Active Substance: CARBOPLATIN
     Dosage: AREA UNDER THE CURVE (AUC) 5 DAY 1
     Dates: start: 20241007, end: 20241007
  7. PACLITAXEL [Suspect]
     Active Substance: PACLITAXEL
     Indication: Breast neoplasm
     Dosage: 80 MILLIGRAM/SQ. METER ON DAYS DAY 1,8,15 X 4
     Dates: start: 20240807, end: 20240807
  8. PACLITAXEL [Suspect]
     Active Substance: PACLITAXEL
     Dosage: 80 MILLIGRAM/SQ. METER ON DAYS DAY 1,8,15 X 4
     Dates: start: 20240814, end: 20240814
  9. PACLITAXEL [Suspect]
     Active Substance: PACLITAXEL
     Dosage: 80 MILLIGRAM/SQ. METER ON DAYS DAY 1,8,15 X 4
     Dates: start: 20240823, end: 20240823
  10. PACLITAXEL [Suspect]
     Active Substance: PACLITAXEL
     Dosage: 80 MILLIGRAM/SQ. METER ON DAYS DAY 1,8,15 X 4
     Dates: start: 20240902, end: 20240902
  11. PACLITAXEL [Suspect]
     Active Substance: PACLITAXEL
     Dosage: 80 MILLIGRAM/SQ. METER ON DAYS DAY 1,8,15 X 4
     Dates: start: 20240910, end: 20240910
  12. PACLITAXEL [Suspect]
     Active Substance: PACLITAXEL
     Dosage: 80 MILLIGRAM/SQ. METER ON DAYS DAY 1,8,15 X 4
     Dates: start: 20240919, end: 20240919
  13. PACLITAXEL [Suspect]
     Active Substance: PACLITAXEL
     Dosage: 80 MILLIGRAM/SQ. METER ON DAYS DAY 1,8,15 X 4
     Dates: start: 20241007, end: 20241007

REACTIONS (10)
  - Neutropenia [Recovered/Resolved]
  - Neutropenia [Recovered/Resolved]
  - Hepatic cytolysis [Recovering/Resolving]
  - Pruritus [Unknown]
  - Neutrophilia [Recovered/Resolved]
  - Haemoglobin abnormal [Unknown]
  - Platelet count abnormal [Unknown]
  - Blood creatinine abnormal [Unknown]
  - Aspartate aminotransferase increased [Recovering/Resolving]
  - Alanine aminotransferase increased [Recovering/Resolving]

NARRATIVE: CASE EVENT DATE: 20240808
